FAERS Safety Report 6397866-5 (Version None)
Quarter: 2009Q4

REPORT INFORMATION
  Report Type: 
  Country: None (occurrence: None)
  Receive Date: 20091013
  Receipt Date: 20091001
  Transmission Date: 20100525
  Serious: Yes (Hospitalization)
  Sender: FDA-Public Use
  Company Number: BR-BIOGENIDEC-2008BI023084

PATIENT
  Age: 30 Year
  Sex: Female

DRUGS (7)
  1. AVONEX [Suspect]
     Indication: MULTIPLE SCLEROSIS
     Route: 030
     Dates: start: 20060101, end: 20081202
  2. AVONEX [Suspect]
  3. RIVOTRIL [Concomitant]
     Indication: INSOMNIA
  4. CONTRACEPTIVE [Concomitant]
  5. DIAZEPAM [Concomitant]
     Indication: SEDATION
  6. TOPIRAMATE [Concomitant]
     Indication: DRUG USE FOR UNKNOWN INDICATION
  7. OMEPRAZOLE [Concomitant]
     Indication: GASTRITIS

REACTIONS (24)
  - ARACHNOID CYST [None]
  - BENIGN INTRACRANIAL HYPERTENSION [None]
  - BLOOD PRESSURE INCREASED [None]
  - BURNING SENSATION [None]
  - EAR PAIN [None]
  - ERYTHEMA [None]
  - EYE PAIN [None]
  - FACIAL PALSY [None]
  - FEELING HOT [None]
  - HEART RATE INCREASED [None]
  - HYPERHIDROSIS [None]
  - HYPERTENSION [None]
  - MALAISE [None]
  - MULTIPLE SCLEROSIS RELAPSE [None]
  - MUSCLE SPASMS [None]
  - MUSCULAR WEAKNESS [None]
  - NECK PAIN [None]
  - NUCLEAR MAGNETIC RESONANCE IMAGING ABNORMAL [None]
  - OEDEMA PERIPHERAL [None]
  - PAIN [None]
  - PHOTOPHOBIA [None]
  - SENSORY LOSS [None]
  - SERUM SEROTONIN DECREASED [None]
  - VISION BLURRED [None]
